FAERS Safety Report 4370541-4 (Version None)
Quarter: 2004Q2

REPORT INFORMATION
  Report Type: 
  Country: None (occurrence: None)
  Receive Date: 20040601
  Receipt Date: 20031211
  Transmission Date: 20050107
  Serious: Yes (Other)
  Sender: FDA-Public Use
  Company Number: US060576

PATIENT
  Sex: Male

DRUGS (2)
  1. ENBREL [Suspect]
     Indication: PSORIATIC ARTHROPATHY
     Dosage: TWICE WEEKLY, SC
     Route: 058
     Dates: start: 20031009, end: 20031106
  2. METHOTREXATE [Concomitant]

REACTIONS (4)
  - COLON CANCER [None]
  - DYSGEUSIA [None]
  - DYSPNOEA AT REST [None]
  - PHARYNGOLARYNGEAL PAIN [None]
